FAERS Safety Report 7526275-8 (Version None)
Quarter: 2011Q2

REPORT INFORMATION
  Report Type: 
  Country: None (occurrence: None)
  Receive Date: 20110527
  Receipt Date: 20110513
  Transmission Date: 20111010
  Serious: Yes (Disabling, Other)
  Sender: FDA-Public Use
  Company Number: 2011AT000157

PATIENT
  Age: 53 Year
  Sex: Female

DRUGS (1)
  1. PSEUDOEPHEDRINE HCL [Suspect]
     Indication: NASOPHARYNGITIS

REACTIONS (6)
  - HYPERTENSION [None]
  - QUADRIPLEGIA [None]
  - HYPOTENSION [None]
  - BLINDNESS CORTICAL [None]
  - CEREBRAL VASOCONSTRICTION [None]
  - UNRESPONSIVE TO STIMULI [None]
